FAERS Safety Report 8505135 (Version 3)
Quarter: 2012Q4

REPORT INFORMATION
  Report Type: Spontaneous
  Country: US (occurrence: None)
  Receive Date: 20120405
  Receipt Date: 20120911
  Transmission Date: 20130627
  Serious: Yes (Death, Hospitalization)
  Sender: FDA-Public Use
  Company Number: JPI-P-020551

PATIENT
  Age: 58 Year
  Sex: Male

DRUGS (4)
  1. XYREM [Suspect]
     Indication: NARCOLEPSY
     Dosage: ( 3Gm first dose/4.5 gm second dose), Oral
     Route: 048
     Dates: start: 20061004
  2. XYREM [Suspect]
     Indication: NARCOLEPSY
     Dosage: (titrating dose), Oral
     Route: 048
  3. XYREM [Suspect]
     Indication: NARCOLEPSY
     Dosage: SEE IMAGE
     Route: 048
     Dates: start: 20060926
  4. XYREM [Suspect]
     Indication: NARCOLEPSY
     Route: 048
     Dates: start: 20080520

REACTIONS (2)
  - Haemoglobin decreased [None]
  - Malaise [None]
